FAERS Safety Report 7321322-0 (Version None)
Quarter: 2011Q1

REPORT INFORMATION
  Report Type: 
  Country: None (occurrence: None)
  Receive Date: 20110228
  Receipt Date: 20100319
  Transmission Date: 20110831
  Serious: No
  Sender: FDA-Public Use
  Company Number: US-PFIZER INC-2010036466

PATIENT

DRUGS (3)
  1. HALDOL [Suspect]
     Dosage: 5 MG, SINGLE
     Route: 030
     Dates: start: 20100315
  2. HALDOL [Suspect]
     Dosage: 5 MG, SINGLE
     Route: 030
     Dates: start: 20100310
  3. GEODON [Suspect]
     Dosage: 80 MG, 2X/DAY
     Dates: start: 20100308, end: 20100315

REACTIONS (2)
  - DROOLING [None]
  - TREMOR [None]
